FAERS Safety Report 6737040-3 (Version None)
Quarter: 2010Q2

REPORT INFORMATION
  Report Type: 
  Country: None (occurrence: None)
  Receive Date: 20100524
  Receipt Date: 20100517
  Transmission Date: 20101027
  Serious: Yes (Hospitalization)
  Sender: FDA-Public Use
  Company Number: FR-ROCHE-703581

PATIENT
  Sex: Female

DRUGS (11)
  1. ROCEPHIN [Suspect]
     Indication: BRONCHITIS
     Dosage: FORM: POWDER FOR INJECTABLE SOLUTION
     Route: 030
     Dates: start: 20091224, end: 20100104
  2. COUMADIN [Suspect]
     Indication: DRUG USE FOR UNKNOWN INDICATION
     Dosage: FORM: DIVISIBLE TABLET
     Route: 048
     Dates: start: 20091002, end: 20100105
  3. TAREG [Concomitant]
     Route: 048
  4. ZOLPIDEM [Concomitant]
     Dosage: FORM: DIVISIBLE COATED TABLET
     Route: 048
  5. FUROSEMIDE [Concomitant]
     Route: 048
  6. GELUPRANE [Concomitant]
     Route: 048
  7. SKENAN LP [Concomitant]
     Route: 048
  8. LOXEN [Concomitant]
     Dosage: DRUG REPORTED AS LOXEN LP
     Route: 048
  9. AUGMENTIN '125' [Concomitant]
     Dates: start: 20091221, end: 20091224
  10. CACIT D3 [Concomitant]
     Dosage: UG: CACIT VITAMINE D3 1000MG/88IU; EFFERVESCENT GRANULE FOR ORAL SOLUTION
     Route: 048
  11. TAVANIC [Concomitant]

REACTIONS (2)
  - INTERNATIONAL NORMALISED RATIO INCREASED [None]
  - VASCULAR PURPURA [None]
